FAERS Safety Report 9525253 (Version 1)
Quarter: 2013Q3

REPORT INFORMATION
  Report Type: Spontaneous
  Country: US (occurrence: US)
  Receive Date: 20130916
  Receipt Date: 20130916
  Transmission Date: 20140515
  Serious: Yes (Other)
  Sender: FDA-Public Use
  Company Number: US-BAYER-2013-109997

PATIENT
  Age: 18 Year
  Sex: Female
  Weight: 49.89 kg

DRUGS (3)
  1. YAZ [Suspect]
  2. YASMIN [Suspect]
  3. IBUPROFEN [Concomitant]

REACTIONS (2)
  - Cerebrovascular accident [None]
  - Deep vein thrombosis [None]
